FAERS Safety Report 5814090-2 (Version None)
Quarter: 2008Q3

REPORT INFORMATION
  Report Type: 
  Country: None (occurrence: None)
  Receive Date: 20080717
  Receipt Date: 20080711
  Transmission Date: 20090109
  Serious: Yes (Hospitalization)
  Sender: FDA-Public Use
  Company Number: GB-BOEHRINGER INGELHEIM GMBH, GERMANY-2008-DE-04039GD

PATIENT

DRUGS (7)
  1. CLONIDINE [Suspect]
     Indication: POSTOPERATIVE ANALGESIA
     Dosage: 1.2 MCG/ML, CONTINUOUS INFUSION AT 10 ML/H
  2. LEVOBUPIVACAINE [Suspect]
     Indication: POSTOPERATIVE ANALGESIA
     Dosage: 30 ML OF 0.5% BOLUS, THEN CONTINUOUS INFUSION AT A RATE OF 10 ML/H OF 0.125%
  3. ACETAMINOPHEN [Concomitant]
     Indication: ANALGESIA
     Route: 048
  4. BUPIVACAINE [Concomitant]
     Indication: SPINAL ANAESTHESIA
     Dosage: 2.5 ML OF 0.5% HYPERBARIC BUPIVACAINE
  5. PROPOFOL [Concomitant]
     Indication: SEDATIVE THERAPY
     Dosage: 0.5 - 2 MCG/ML INFUSION
  6. DIHYDROCODEINE [Concomitant]
     Indication: ANALGESIA
     Route: 048
  7. TRAMADOL HCL [Concomitant]
     Route: 048

REACTIONS (2)
  - CONVULSION [None]
  - DEMYELINATION [None]
